FAERS Safety Report 8123046-9 (Version None)
Quarter: 2011Q4

REPORT INFORMATION
  Report Type: 
  Country: None (occurrence: None)
  Receive Date: 20111227
  Receipt Date: 20111118
  Transmission Date: 20120403
  Serious: No
  Sender: FDA-Public Use
  Company Number: PHEH2011US010000

PATIENT
  Age: 53 Year
  Sex: Female

DRUGS (7)
  1. GILENYA [Suspect]
     Indication: MULTIPLE SCLEROSIS
     Dosage: 0.5 MG, QD, ORAL
     Route: 048
     Dates: start: 20111111
  2. SIMVASTATIN [Concomitant]
  3. RAMIPRIL [Concomitant]
  4. PROVIGIL [Concomitant]
  5. BACLOFEN [Concomitant]
  6. VITAMIN D [Concomitant]
  7. HYDROXYZINE [Concomitant]

REACTIONS (1)
  - COLOUR BLINDNESS ACQUIRED [None]
